FAERS Safety Report 19819622 (Version 2)
Quarter: 2021Q3

REPORT INFORMATION
  Report Type: Spontaneous
  Country: JP (occurrence: JP)
  Receive Date: 20210913
  Receipt Date: 20210922
  Transmission Date: 20211014
  Serious: Yes (Hospitalization)
  Sender: FDA-Public Use
  Company Number: JP-NOVOPROD-843051

PATIENT
  Age: 67 Year
  Sex: Male

DRUGS (5)
  1. LYUMJEV [Suspect]
     Active Substance: INSULIN LISPRO-AABC
     Indication: TYPE 2 DIABETES MELLITUS
     Dosage: 24 IU, QD
     Route: 065
  2. TRESIBA [Suspect]
     Active Substance: INSULIN DEGLUDEC
     Dosage: 20 IU, QD
     Route: 058
     Dates: start: 20210824
  3. LYUMJEV [Suspect]
     Active Substance: INSULIN LISPRO-AABC
     Dosage: 20 IU, QD (4?8?8IU)
     Route: 065
     Dates: start: 20210825
  4. TRESIBA [Suspect]
     Active Substance: INSULIN DEGLUDEC
     Dosage: 18 IU, QD
     Route: 058
     Dates: start: 20210825
  5. TRESIBA [Suspect]
     Active Substance: INSULIN DEGLUDEC
     Indication: TYPE 2 DIABETES MELLITUS
     Dosage: 20 IU, QD (IN THE EVENING)
     Route: 058

REACTIONS (3)
  - Hypoglycaemia [Recovered/Resolved]
  - Radius fracture [Unknown]
  - Blood glucose fluctuation [Unknown]

NARRATIVE: CASE EVENT DATE: 20210825
